FAERS Safety Report 4303030-3 (Version None)
Quarter: 2004Q1

REPORT INFORMATION
  Report Type: 
  Country: None (occurrence: None)
  Receive Date: 20040224
  Receipt Date: 20030123
  Transmission Date: 20041129
  Serious: Yes (Disabling)
  Sender: FDA-Public Use
  Company Number: WAES 0301AUS00122

PATIENT
  Age: 69 Year
  Sex: Female

DRUGS (5)
  1. LOSEC (OMEPRAZOLE MAGNESIUM) [Concomitant]
  2. COVERSYL [Concomitant]
  3. VIOXX [Concomitant]
  4. ZOCOR [Suspect]
     Indication: BLOOD CHOLESTEROL INCREASED
     Route: 048
     Dates: end: 20020101
  5. ZOCOR [Suspect]
     Route: 048
     Dates: start: 20020101, end: 20021117

REACTIONS (2)
  - MUSCLE RIGIDITY [None]
  - MYALGIA [None]
